FAERS Safety Report 7157286-2 (Version None)
Quarter: 2010Q4

REPORT INFORMATION
  Report Type: 
  Country: None (occurrence: None)
  Receive Date: 20101214
  Receipt Date: 20101213
  Transmission Date: 20110411
  Serious: Yes (Other)
  Sender: FDA-Public Use
  Company Number: A0899448A

PATIENT
  Age: 67 Year
  Sex: Female

DRUGS (1)
  1. WALGREENS NICOTINE TRANSDERMAL SYSTEM PATCH CLEAR, 21MG [Suspect]
     Indication: SMOKING CESSATION THERAPY
     Route: 062
     Dates: start: 20101207

REACTIONS (5)
  - APPLICATION SITE ERYTHEMA [None]
  - CELLULITIS [None]
  - ERYTHEMA [None]
  - JOINT SWELLING [None]
  - PAIN IN EXTREMITY [None]
